FAERS Safety Report 6383677-3 (Version None)
Quarter: 2009Q4

REPORT INFORMATION
  Report Type: 
  Country: None (occurrence: None)
  Receive Date: 20091001
  Receipt Date: 20090922
  Transmission Date: 20100525
  Serious: Yes (Other)
  Sender: FDA-Public Use
  Company Number: US-ELI_LILLY_AND_COMPANY-US200908006760

PATIENT
  Age: 68 Year
  Sex: Female

DRUGS (1)
  1. GEMZAR [Suspect]
     Indication: OVARIAN CANCER METASTATIC
     Dosage: 1000 MG/M2, UNK
     Dates: start: 20090602, end: 20090602

REACTIONS (2)
  - ASCITES [None]
  - PLEURAL EFFUSION [None]
